FAERS Safety Report 5473639-2 (Version None)
Quarter: 2007Q4

REPORT INFORMATION
  Report Type: 
  Country: None (occurrence: None)
  Receive Date: 20071001
  Receipt Date: 20070927
  Transmission Date: 20080405
  Serious: Yes (Hospitalization)
  Sender: FDA-Public Use
  Company Number: AU-ROXANE LABORATORIES, INC-2007-DE-05801GD

PATIENT

DRUGS (2)
  1. MORPHINE [Suspect]
     Indication: POSTOPERATIVE ANALGESIA
     Route: 037
  2. MORPHINE [Suspect]
     Route: 042

REACTIONS (1)
  - POST PROCEDURAL HAEMORRHAGE [None]
